FAERS Safety Report 21202460 (Version 1)
Quarter: 2022Q3

REPORT INFORMATION
  Report Type: Spontaneous
  Country: US (occurrence: US)
  Receive Date: 20220811
  Receipt Date: 20220811
  Transmission Date: 20221026
  Serious: No
  Sender: FDA-Public Use
  Company Number: US-OTSUKA-2022_034837

PATIENT
  Sex: Female
  Weight: 77.56 kg

DRUGS (2)
  1. REXULTI [Suspect]
     Active Substance: BREXPIPRAZOLE
     Indication: Depression
     Dosage: 0.5 MG
     Route: 065
     Dates: start: 20220622, end: 20220627
  2. ZOLOFT [Concomitant]
     Active Substance: SERTRALINE HYDROCHLORIDE
     Indication: Depression
     Dosage: UNK
     Route: 065

REACTIONS (7)
  - Fall [Unknown]
  - Increased appetite [Unknown]
  - Restlessness [Unknown]
  - Dizziness [Unknown]
  - Tremor [Unknown]
  - Somnolence [Unknown]
  - Akathisia [Unknown]

NARRATIVE: CASE EVENT DATE: 20220101
